FAERS Safety Report 9379596 (Version 1)
Quarter: 2013Q2

REPORT INFORMATION
  Report Type: Spontaneous
  Country: CN (occurrence: None)
  Receive Date: 20130627
  Receipt Date: 20130627
  Transmission Date: 20140414
  Serious: Yes (Other)
  Sender: FDA-Public Use
  Company Number: 2013P1009925

PATIENT
  Age: 14 Year
  Sex: Female

DRUGS (1)
  1. ALBENDAZOLE [Suspect]
     Indication: ASCARIASIS
     Dosage: 2 TABLETS
     Route: 048
     Dates: start: 20120710, end: 20120710

REACTIONS (1)
  - Convulsion [None]
